FAERS Safety Report 11155682 (Version 1)
Quarter: 2015Q2

REPORT INFORMATION
  Report Type: Spontaneous
  Country: IN (occurrence: IN)
  Receive Date: 20150602
  Receipt Date: 20150602
  Transmission Date: 20150821
  Serious: Yes (Hospitalization)
  Sender: FDA-Public Use
  Company Number: IN-BAYER-2015-275658

PATIENT
  Age: 13 Year
  Sex: Female

DRUGS (2)
  1. PIROXICAM. [Concomitant]
     Active Substance: PIROXICAM
     Indication: PYREXIA
  2. CIPROFLOXACIN. [Suspect]
     Active Substance: CIPROFLOXACIN
     Indication: PYREXIA

REACTIONS (5)
  - Systemic lupus erythematosus [Recovering/Resolving]
  - Pain in extremity [None]
  - Haematochezia [None]
  - Diarrhoea [None]
  - Vomiting [None]
